FAERS Safety Report 25598295 (Version 1)
Quarter: 2025Q3

REPORT INFORMATION
  Report Type: Spontaneous
  Country: TW (occurrence: TW)
  Receive Date: 20250723
  Receipt Date: 20250723
  Transmission Date: 20251021
  Serious: Yes (Death, Hospitalization, Other)
  Sender: PFIZER
  Company Number: TW-PFIZER INC-PV202500088329

PATIENT
  Age: 76 Year
  Sex: Female
  Weight: 64 kg

DRUGS (4)
  1. METHOTREXATE SODIUM [Suspect]
     Active Substance: METHOTREXATE SODIUM
     Indication: Rheumatoid arthritis
     Dosage: 7.5 MG, WEEKLY
     Route: 048
     Dates: start: 20240314, end: 20240508
  2. METHOTREXATE SODIUM [Suspect]
     Active Substance: METHOTREXATE SODIUM
     Dosage: 15 MG, WEEKLY
     Route: 048
     Dates: start: 20240509, end: 20240801
  3. PLAQUENIL [Concomitant]
     Active Substance: HYDROXYCHLOROQUINE SULFATE
     Indication: Rheumatoid arthritis
     Dosage: 200 MG, 2X/DAY
     Route: 048
     Dates: start: 20240314, end: 20241024
  4. FOLIC ACID [Concomitant]
     Active Substance: FOLIC ACID
     Dosage: UNK UNK, 1X/DAY
     Dates: start: 20240314

REACTIONS (6)
  - Lymphoproliferative disorder [Fatal]
  - Pyrexia [Unknown]
  - Urinary tract infection bacterial [Unknown]
  - Hepatosplenomegaly [Unknown]
  - Lymphadenopathy [Unknown]
  - Drug ineffective [Unknown]

NARRATIVE: CASE EVENT DATE: 20240620
